FAERS Safety Report 7398201-6 (Version None)
Quarter: 2011Q2

REPORT INFORMATION
  Report Type: 
  Country: None (occurrence: None)
  Receive Date: 20110406
  Receipt Date: 20110401
  Transmission Date: 20111010
  Serious: Yes (Other)
  Sender: FDA-Public Use
  Company Number: CN-B.I. PHARMACEUTICALS,INC./RIDGEFIELD-2011-DE-02155GD

PATIENT

DRUGS (3)
  1. LAMIVUDINE [Suspect]
  2. NEVIRAPINE [Suspect]
  3. ZIDOVUDINE [Suspect]

REACTIONS (1)
  - PANCREATITIS [None]
